FAERS Safety Report 5705651-X (Version None)
Quarter: 2008Q2

REPORT INFORMATION
  Report Type: 
  Country: None (occurrence: None)
  Receive Date: 20080415
  Receipt Date: 20080410
  Transmission Date: 20081010
  Serious: Yes (Other)
  Sender: FDA-Public Use
  Company Number: GR-BRISTOL-MYERS SQUIBB COMPANY-14146526

PATIENT
  Age: 58 Year
  Sex: Male

DRUGS (4)
  1. CISPLATIN [Suspect]
     Indication: SQUAMOUS CELL CARCINOMA
     Dosage: 100 MG/M2 CYCLIC
     Route: 042
     Dates: start: 20080110, end: 20080110
  2. BLINDED: LAPATINIB [Suspect]
     Indication: SQUAMOUS CELL CARCINOMA
     Route: 048
  3. BLINDED: PLACEBO [Suspect]
     Indication: SQUAMOUS CELL CARCINOMA
     Route: 048
  4. RADIOTHERAPY [Suspect]
     Indication: SQUAMOUS CELL CARCINOMA
     Dosage: 1 DOSAGE FORM = 10GRAY, INTERRUPTED ON FEB-28 AND FEB-29-2008.
     Route: 061
     Dates: start: 20080110

REACTIONS (1)
  - MUCOSAL INFLAMMATION [None]
